FAERS Safety Report 7206263-1 (Version None)
Quarter: 2011Q1

REPORT INFORMATION
  Report Type: 
  Country: None (occurrence: None)
  Receive Date: 20110103
  Receipt Date: 20101221
  Transmission Date: 20110831
  Serious: Yes (Other)
  Sender: FDA-Public Use
  Company Number: PHHY2010CA87230

PATIENT
  Sex: Female

DRUGS (2)
  1. ANTIINFLAMMATORY [Concomitant]
  2. ACLASTA [Suspect]
     Dosage: UNK
     Dates: start: 20100127

REACTIONS (4)
  - PAIN [None]
  - BACK PAIN [None]
  - PAIN IN EXTREMITY [None]
  - SCIATICA [None]
